FAERS Safety Report 8835312 (Version 1)
Quarter: 2012Q4

REPORT INFORMATION
  Report Type: 
  Country: FR (occurrence: FR)
  Receive Date: 20121011
  Receipt Date: 20121011
  Transmission Date: 20130627
  Serious: Yes (Other)
  Sender: FDA-Public Use
  Company Number: FR-ROCHE-1116981

PATIENT
  Sex: Female
  Weight: 50 kg

DRUGS (1)
  1. ZELBORAF [Suspect]
     Indication: PRODUCT USED FOR UNKNOWN INDICATION
     Route: 048
     Dates: start: 20110608

REACTIONS (3)
  - Photosensitivity reaction [Recovered/Resolved]
  - Hyperthermia [Recovered/Resolved]
  - Photosensitivity reaction [Recovered/Resolved]
